FAERS Safety Report 6806221-2 (Version None)
Quarter: 2010Q2

REPORT INFORMATION
  Report Type: 
  Country: None (occurrence: None)
  Receive Date: 20100629
  Receipt Date: 20080115
  Transmission Date: 20101027
  Serious: Yes (Other)
  Sender: FDA-Public Use
  Company Number: US-PFIZER INC-2008004648

PATIENT
  Sex: Male
  Weight: 79.4 kg

DRUGS (1)
  1. VIAGRA [Suspect]
     Indication: ERECTILE DYSFUNCTION
     Dates: start: 20071101

REACTIONS (4)
  - ERECTION INCREASED [None]
  - FEELING ABNORMAL [None]
  - MUSCLE RIGIDITY [None]
  - NAUSEA [None]
